FAERS Safety Report 8030449-X (Version None)
Quarter: 2012Q1

REPORT INFORMATION
  Report Type: 
  Country: None (occurrence: None)
  Receive Date: 20120109
  Receipt Date: 20120106
  Transmission Date: 20120608
  Serious: Yes (Death)
  Sender: FDA-Public Use
  Company Number: PHHY2012NZ001038

PATIENT
  Sex: Female

DRUGS (1)
  1. CLOZARIL [Suspect]
     Indication: SCHIZOPHRENIA
     Dates: start: 20020522

REACTIONS (5)
  - RENAL FAILURE ACUTE [None]
  - RESPIRATORY FAILURE [None]
  - PNEUMONIA [None]
  - INTESTINAL OBSTRUCTION [None]
  - ADHESION [None]
